FAERS Safety Report 24304557 (Version 1)
Quarter: 2024Q3

REPORT INFORMATION
  Report Type: Other
  Country: US (occurrence: US)
  Receive Date: 20240910
  Receipt Date: 20240910
  Transmission Date: 20241017
  Serious: No
  Sender: SIGMA TAU
  Company Number: US-LEADIANT BIOSCIENCES, INC.-2023STPI000337

PATIENT
  Sex: Male

DRUGS (1)
  1. MATULANE [Suspect]
     Active Substance: PROCARBAZINE HYDROCHLORIDE
     Indication: Brain neoplasm malignant
     Dosage: 50 MILLIGRAMS, 3 CAPSULES (150MG TOTAL) DAILY FOR 14 DAYS STARTING ON DAY 8 OF EACH 42-DAY CYCLE, TO
     Route: 048
     Dates: start: 20230321

REACTIONS (2)
  - Fatigue [Unknown]
  - Constipation [Unknown]
